FAERS Safety Report 13583137 (Version 1)
Quarter: 2017Q2

REPORT INFORMATION
  Report Type: Spontaneous
  Country: RU (occurrence: RU)
  Receive Date: 20170525
  Receipt Date: 20170525
  Transmission Date: 20170830
  Serious: Yes (Other)
  Sender: FDA-Public Use
  Company Number: RU-TEVA-772273ISR

PATIENT
  Age: 80 Year
  Sex: Female

DRUGS (5)
  1. LINEX [Concomitant]
     Active Substance: LACTOBACILLUS ACIDOPHILUS
     Indication: FUNGAL INFECTION
     Dosage: 6 DOSAGE FORMS DAILY; 1 DOSAGE FORM=1 CAPSULE
  2. DE-NOL [Concomitant]
     Indication: FUNGAL INFECTION
     Dosage: 4 TABLET DAILY;
     Route: 048
  3. FLUCONAZOLE TEVA 100MG CAPSULE [Suspect]
     Active Substance: FLUCONAZOLE
  4. FLUCONAZOLE TEVA 100MG CAPSULE [Suspect]
     Active Substance: FLUCONAZOLE
     Indication: FUNGAL INFECTION
     Dosage: 100 MILLIGRAM DAILY;
  5. OMEZ [Concomitant]
     Active Substance: OMEPRAZOLE
     Indication: FUNGAL INFECTION
     Route: 048

REACTIONS (5)
  - Blood pressure increased [Recovered/Resolved]
  - Arrhythmia [Recovered/Resolved]
  - Dysgeusia [Recovered/Resolved]
  - Headache [Recovered/Resolved]
  - Nausea [Recovered/Resolved]
